FAERS Safety Report 14679127 (Version 3)
Quarter: 2018Q2

REPORT INFORMATION
  Report Type: Spontaneous
  Country: FR (occurrence: FR)
  Receive Date: 20180326
  Receipt Date: 20180412
  Transmission Date: 20180711
  Serious: Yes (Death, Hospitalization)
  Sender: FDA-Public Use
  Company Number: PHHY2018FR049508

PATIENT
  Age: 81 Year
  Sex: Male

DRUGS (3)
  1. FUROSEMIDE. [Concomitant]
     Active Substance: FUROSEMIDE
     Indication: PRODUCT USED FOR UNKNOWN INDICATION
     Dosage: 500 MG, UNK
     Route: 065
  2. WARFARIN [Concomitant]
     Active Substance: WARFARIN
     Indication: PRODUCT USED FOR UNKNOWN INDICATION
     Dosage: UNK
     Route: 065
  3. ENTRESTO [Suspect]
     Active Substance: SACUBITRIL\VALSARTAN
     Indication: CARDIAC FAILURE
     Dosage: 50 MG (24/26 MG), BID
     Route: 065
     Dates: start: 201711

REACTIONS (8)
  - Dyspnoea [Unknown]
  - Cough [Unknown]
  - Multiple organ dysfunction syndrome [Fatal]
  - End stage renal disease [Fatal]
  - Cardiac failure [Fatal]
  - Gastrointestinal haemorrhage [Recovered/Resolved]
  - General physical health deterioration [Unknown]
  - Generalised oedema [Fatal]

NARRATIVE: CASE EVENT DATE: 201801
